FAERS Safety Report 6436348-9 (Version None)
Quarter: 2009Q4

REPORT INFORMATION
  Report Type: 
  Country: None (occurrence: None)
  Receive Date: 20091111
  Receipt Date: 20091028
  Transmission Date: 20100525
  Serious: Yes (Other)
  Sender: FDA-Public Use
  Company Number: PHEH2009US14874

PATIENT
  Sex: Male

DRUGS (4)
  1. GLEEVEC [Suspect]
     Indication: CHRONIC MYELOID LEUKAEMIA
     Dosage: 400 MG, QD
     Route: 048
     Dates: start: 20060726
  2. HYDROCHLOROTHIAZIDE [Concomitant]
     Dosage: 12.5 MG, QD
     Route: 048
  3. COZAAR [Concomitant]
     Dosage: 25 MG, QD
     Route: 048
  4. LEVOTHYROXINE SODIUM [Concomitant]
     Dosage: UNK, UNK

REACTIONS (1)
  - EYE HAEMORRHAGE [None]
